FAERS Safety Report 6335268-8 (Version None)
Quarter: 2009Q3

REPORT INFORMATION
  Report Type: 
  Country: None (occurrence: None)
  Receive Date: 20090831
  Receipt Date: 20090826
  Transmission Date: 20100115
  Serious: Yes (Hospitalization)
  Sender: FDA-Public Use
  Company Number: GB-MERCK-0908GBR00078

PATIENT
  Age: 76 Year
  Sex: Female

DRUGS (10)
  1. FOSAMAX [Suspect]
     Indication: OSTEOPOROSIS PROPHYLAXIS
     Route: 048
     Dates: end: 20090812
  2. NAPROXEN [Suspect]
     Indication: PAIN
     Route: 048
     Dates: end: 20090730
  3. NAPROXEN [Suspect]
     Route: 048
     Dates: start: 20090731, end: 20090812
  4. CALCIUM CARBONATE AND CHOLECALCIFEROL [Concomitant]
     Route: 065
  5. AMLODIPINE [Concomitant]
     Route: 065
  6. BETAHISTINE [Concomitant]
     Route: 065
  7. RANITIDINE [Concomitant]
     Route: 065
  8. SIMVASTATIN [Concomitant]
     Route: 065
  9. TRAMADOL HYDROCHLORIDE [Concomitant]
     Route: 065
  10. ZOLPIDEM TARTRATE [Concomitant]
     Route: 065

REACTIONS (2)
  - GASTRIC ULCER HAEMORRHAGE [None]
  - HAEMATEMESIS [None]
